FAERS Safety Report 25824894 (Version 1)
Quarter: 2025Q3

REPORT INFORMATION
  Report Type: Report from Study
  Country: US (occurrence: US)
  Receive Date: 20250919
  Receipt Date: 20250919
  Transmission Date: 20251021
  Serious: Yes (Other)
  Sender: ALEXION PHARMACEUTICALS
  Company Number: US-AstraZeneca-CH-00951740A

PATIENT
  Sex: Male

DRUGS (1)
  1. ACALABRUTINIB [Suspect]
     Active Substance: ACALABRUTINIB
     Indication: Chronic lymphocytic leukaemia
     Dosage: 100 MILLIGRAM, BID
     Dates: start: 20231125

REACTIONS (7)
  - Stress fracture [Unknown]
  - Glycosylated haemoglobin decreased [Unknown]
  - Fall [Unknown]
  - Platelet count increased [Unknown]
  - Infection [Unknown]
  - Fatigue [Unknown]
  - Product dose omission issue [Unknown]
